FAERS Safety Report 9166057 (Version 1)
Quarter: 2013Q1

REPORT INFORMATION
  Report Type: Spontaneous
  Country: US (occurrence: US)
  Receive Date: 20130315
  Receipt Date: 20130315
  Transmission Date: 20140127
  Serious: Yes (Other)
  Sender: FDA-Public Use
  Company Number: US-GLAXOSMITHKLINE-A1015846A

PATIENT
  Sex: Female

DRUGS (1)
  1. BENLYSTA [Suspect]
     Route: 042
     Dates: start: 20111221

REACTIONS (1)
  - Haemorrhage [Unknown]
